FAERS Safety Report 12560932 (Version 1)
Quarter: 2016Q3

REPORT INFORMATION
  Report Type: Spontaneous
  Country: DE (occurrence: DE)
  Receive Date: 20160715
  Receipt Date: 20160715
  Transmission Date: 20161109
  Serious: Yes (Other)
  Sender: FDA-Public Use
  Company Number: DE-ELI_LILLY_AND_COMPANY-DE201604001225

PATIENT
  Sex: Male

DRUGS (11)
  1. REKAWAN [Concomitant]
     Active Substance: POTASSIUM CHLORIDE
  2. HCT [Concomitant]
     Active Substance: HYDROCHLOROTHIAZIDE
  3. CYRAMZA [Suspect]
     Active Substance: RAMUCIRUMAB
     Indication: ADENOCARCINOMA GASTRIC
     Dosage: 8 MG/KG, UNKNOWN
     Route: 042
     Dates: start: 201601
  4. PACLITAXEL. [Suspect]
     Active Substance: PACLITAXEL
     Indication: ADENOCARCINOMA GASTRIC
     Dosage: UNK, UNKNOWN
     Route: 065
     Dates: start: 201601
  5. ASPIRIN. [Concomitant]
     Active Substance: ASPIRIN
  6. FENISTIL [Concomitant]
     Active Substance: DIMETHINDENE
  7. FUROSEMIDE. [Concomitant]
     Active Substance: FUROSEMIDE
  8. ALLOPURINOL. [Concomitant]
     Active Substance: ALLOPURINOL
  9. PANTOZOL [Concomitant]
     Active Substance: PANTOPRAZOLE SODIUM
  10. CIBACEN [Concomitant]
     Active Substance: BENAZEPRIL HYDROCHLORIDE
  11. RANITIN [Concomitant]

REACTIONS (3)
  - Tumour haemorrhage [Unknown]
  - Haemoglobin decreased [Unknown]
  - Gastrointestinal haemorrhage [Unknown]
